FAERS Safety Report 15977342 (Version 2)
Quarter: 2019Q1

REPORT INFORMATION
  Report Type: Spontaneous
  Country: US (occurrence: US)
  Receive Date: 20190218
  Receipt Date: 20190327
  Transmission Date: 20190418
  Serious: Yes (Other)
  Sender: FDA-Public Use
  Company Number: US-PFIZER INC-2019071833

PATIENT
  Age: 62 Year
  Sex: Female

DRUGS (1)
  1. IBRANCE [Suspect]
     Active Substance: PALBOCICLIB
     Indication: BREAST CANCER
     Dosage: 125 MG, CYCLIC (DAYS 1-21 EVERY 28 DAYS)
     Route: 048
     Dates: start: 201802

REACTIONS (8)
  - Nausea [Unknown]
  - Fatigue [Unknown]
  - Amnesia [Unknown]
  - Paraesthesia [Unknown]
  - Hot flush [Unknown]
  - Neuropathy peripheral [Recovered/Resolved]
  - Hypoaesthesia [Unknown]
  - Headache [Unknown]
